FAERS Safety Report 19045556 (Version 1)
Quarter: 2021Q1

REPORT INFORMATION
  Report Type: Report from Study
  Country: CA (occurrence: CA)
  Receive Date: 20210323
  Receipt Date: 20210323
  Transmission Date: 20210420
  Serious: Yes (Hospitalization, Other)
  Sender: FDA-Public Use
  Company Number: NVSC2021CA057780

PATIENT
  Age: 46 Year
  Sex: Male
  Weight: 91 kg

DRUGS (1)
  1. TISAGENLECLEUCEL. [Suspect]
     Active Substance: TISAGENLECLEUCEL
     Indication: DIFFUSE LARGE B-CELL LYMPHOMA
     Dosage: UNK
     Route: 042
     Dates: start: 20210216

REACTIONS (13)
  - Cytokine release syndrome [Unknown]
  - Hepatocellular injury [Unknown]
  - Pain [Unknown]
  - C-reactive protein abnormal [Unknown]
  - Pneumonia [Unknown]
  - Blood electrolytes abnormal [Unknown]
  - Dyspnoea [Unknown]
  - Cholelithiasis [Unknown]
  - Diarrhoea [Unknown]
  - Pyrexia [Unknown]
  - Pancreatic enzyme abnormality [Unknown]
  - Cytopenia [Unknown]
  - Serum ferritin abnormal [Unknown]

NARRATIVE: CASE EVENT DATE: 20210217
